FAERS Safety Report 9977655 (Version 2)
Quarter: 2014Q1

REPORT INFORMATION
  Report Type: Report from Study
  Country: US (occurrence: US)
  Receive Date: 20140306
  Receipt Date: 20140306
  Transmission Date: 20141002
  Serious: Yes (Other)
  Sender: FDA-Public Use
  Company Number: US-ABBVIE-13P-163-1159717-00

PATIENT
  Age: 73 Year
  Sex: Female

DRUGS (21)
  1. HUMIRA [Suspect]
     Indication: CROHN^S DISEASE
  2. INFLUENZA VACCINE [Suspect]
     Indication: PRODUCT USED FOR UNKNOWN INDICATION
     Dates: start: 20131008, end: 20131008
  3. CALCIUM + VITAMIN D [Concomitant]
     Indication: OSTEOPENIA
  4. DEXILANT ER [Concomitant]
     Indication: GASTROOESOPHAGEAL REFLUX DISEASE
  5. COZAAR [Concomitant]
     Indication: HYPERTENSION
  6. IRON 150 COMPLEX [Concomitant]
     Indication: ANAEMIA
  7. FOLIC ACID [Concomitant]
     Indication: THYROIDECTOMY
  8. ISOSORBIDE [Concomitant]
     Indication: CARDIAC DISORDER
  9. LEVOTHYROXINE [Concomitant]
     Indication: THYROIDECTOMY
  10. MAALOX [Concomitant]
     Indication: GASTROOESOPHAGEAL REFLUX DISEASE
  11. MAGNESIUM CITRATE [Concomitant]
     Indication: CARDIAC DISORDER
  12. METOPROLOL [Concomitant]
     Indication: HYPERTENSION
  13. VITAMINS [Concomitant]
     Indication: PRODUCT USED FOR UNKNOWN INDICATION
  14. NITROSTAT [Concomitant]
     Indication: CARDIAC DISORDER
  15. PENTASA [Concomitant]
     Indication: CROHN^S DISEASE
  16. PREDAXA [Concomitant]
     Indication: CARDIAC DISORDER
  17. TRAMADOL [Concomitant]
     Indication: ARTHRITIS
  18. TRAZODONE [Concomitant]
     Indication: INSOMNIA
     Dosage: EVERY NIGHT, AT BEDTIME
  19. TYLENOL [Concomitant]
     Indication: FIBROMYALGIA
  20. TOPICAL OINTMENT [Concomitant]
     Indication: ANAL FISSURE
  21. EYE DROPS [Concomitant]
     Indication: CATARACT
     Dosage: 1 DROP TO EACH EYE

REACTIONS (3)
  - Atrial fibrillation [Unknown]
  - Rash macular [Not Recovered/Not Resolved]
  - Injection site bruising [Unknown]
